FAERS Safety Report 7979592-1 (Version None)
Quarter: 2011Q4

REPORT INFORMATION
  Report Type: 
  Country: None (occurrence: None)
  Receive Date: 20111213
  Receipt Date: 20111213
  Transmission Date: 20120403
  Serious: Yes (Hospitalization)
  Sender: FDA-Public Use
  Company Number: None

PATIENT
  Age: 77 Year
  Sex: Male
  Weight: 100 kg

DRUGS (3)
  1. ENOXAPARIN [Suspect]
     Indication: CEREBROVASCULAR ACCIDENT PROPHYLAXIS
     Dosage: 120 MG
     Dates: start: 20111021, end: 20111101
  2. ENOXAPARIN [Suspect]
     Indication: COLONOSCOPY
     Dosage: 120 MG
     Dates: start: 20111021, end: 20111101
  3. ENOXAPARIN [Suspect]
     Indication: ATRIAL FIBRILLATION
     Dosage: 120 MG
     Dates: start: 20111021, end: 20111101

REACTIONS (1)
  - HAEMATOMA [None]
